FAERS Safety Report 8702846 (Version 2)
Quarter: 2012Q4

REPORT INFORMATION
  Report Type: 
  Country: US (occurrence: US)
  Receive Date: 20120803
  Receipt Date: 20120907
  Transmission Date: 20130627
  Serious: Yes (Hospitalization)
  Sender: FDA-Public Use
  Company Number: US-JNJFOC-20120715368

PATIENT
  Age: 11 None
  Sex: Male
  Weight: 34.7 kg

DRUGS (2)
  1. REMICADE [Suspect]
     Indication: CROHN^S DISEASE
     Route: 042
     Dates: start: 2012
  2. MESALAMINE [Concomitant]
     Route: 065

REACTIONS (1)
  - Blood triglycerides increased [Recovering/Resolving]
